FAERS Safety Report 8800125 (Version 1)
Quarter: 2012Q4

REPORT INFORMATION
  Report Type: 
  Country: FR (occurrence: FR)
  Receive Date: 20120921
  Receipt Date: 20120921
  Transmission Date: 20130627
  Serious: Yes (Hospitalization, Other)
  Sender: FDA-Public Use
  Company Number: FR-BRISTOL-MYERS SQUIBB COMPANY-16952988

PATIENT
  Age: 81 Year
  Sex: Male

DRUGS (2)
  1. COUMADIN TABS 2 MG [Suspect]
     Route: 048
     Dates: start: 2009, end: 20120713
  2. KARDEGIC [Interacting]
     Dosage: powder for oral solution
     Route: 048
     Dates: end: 20120713

REACTIONS (5)
  - Subdural haematoma [Not Recovered/Not Resolved]
  - Subarachnoid haemorrhage [Not Recovered/Not Resolved]
  - Drug interaction [Unknown]
  - Fall [Unknown]
  - Dizziness [Unknown]
